FAERS Safety Report 5030238-4 (Version None)
Quarter: 2006Q2

REPORT INFORMATION
  Report Type: 
  Country: None (occurrence: None)
  Receive Date: 20060620
  Receipt Date: 20060525
  Transmission Date: 20061013
  Serious: Yes (Death)
  Sender: FDA-Public Use
  Company Number: JP-ROCHE-449553

PATIENT
  Age: 81 Year
  Sex: Male

DRUGS (11)
  1. ROCEPHIN [Suspect]
     Indication: BRONCHITIS
     Route: 042
     Dates: start: 20060514, end: 20060515
  2. SOLU-MEDROL [Suspect]
     Dosage: ROUTE REPORTED AS INJECTABLE (NOT OTHERWISE SPECIFIED). GENERIC REPORTED AS METHYLPREDNISOLONE SODI+
     Route: 050
     Dates: start: 20060514, end: 20060515
  3. NEOPHYLLIN [Suspect]
     Dosage: MEDICATION REPORTED AS NEOPHYLLIN INJECTION. ROUTE REPORTED AS INJECTABLE (NOT OTHERWISE SPECIFIED).
     Route: 050
     Dates: start: 20060514, end: 20060515
  4. ARDEPHYLLIN [Concomitant]
     Route: 048
     Dates: start: 20060506, end: 20060514
  5. MEPTIN [Concomitant]
     Route: 048
     Dates: start: 20060506, end: 20060514
  6. MUCODYNE [Concomitant]
     Dosage: DOSE FORM REPORTED AS ORAL FORMULATION (NOT OTHERWISE SPECIFIED).
     Route: 048
     Dates: start: 20060506, end: 20060514
  7. NORFLOXACIN [Concomitant]
     Dosage: MEDICATION REPORTED AS XAFLOR.
     Route: 048
     Dates: start: 20060506, end: 20060514
  8. HUMULIN 70/30 [Concomitant]
     Dosage: MEDICATION REPORTED AS HUMILIN R (INSULIN HUMAN(GENETICAL RECOMBINATION)). REPORTED UNIT: UT. ROUTE+
     Route: 050
     Dates: start: 20060514
  9. THEOLONG [Concomitant]
     Route: 048
     Dates: start: 20060515, end: 20060517
  10. PREDONINE [Concomitant]
     Route: 048
     Dates: start: 20060515, end: 20060517
  11. FLUTIDE DISKUS [Concomitant]
     Route: 055
     Dates: start: 20060515, end: 20060517

REACTIONS (3)
  - CARDIAC ARREST [None]
  - HEPATITIS FULMINANT [None]
  - PSEUDOMONAS INFECTION [None]
